FAERS Safety Report 4580462-X (Version None)
Quarter: 2005Q1

REPORT INFORMATION
  Report Type: 
  Country: None (occurrence: None)
  Receive Date: 20050214
  Receipt Date: 20040123
  Transmission Date: 20050727
  Serious: No
  Sender: FDA-Public Use
  Company Number: US-GLAXOSMITHKLINE-A0496018A

PATIENT
  Age: 20 Year
  Sex: Female
  Weight: 75 kg

DRUGS (6)
  1. LAMICTAL [Suspect]
     Dosage: 100MG TWICE PER DAY
     Route: 048
     Dates: start: 19990101
  2. ZOLOFT [Concomitant]
     Dosage: 25MG PER DAY
     Dates: start: 19980101
  3. ORTHO EVRA [Concomitant]
     Route: 061
  4. PRENATAL VITAMINS [Concomitant]
     Route: 048
  5. VITAMIN C [Concomitant]
     Route: 048
  6. ECHINACEA [Concomitant]
     Route: 048

REACTIONS (3)
  - GALACTORRHOEA [None]
  - HYPOTHALAMO-PITUITARY DISORDERS [None]
  - VISUAL FIELD DEFECT [None]
